FAERS Safety Report 7578624-2 (Version None)
Quarter: 2011Q2

REPORT INFORMATION
  Report Type: 
  Country: None (occurrence: None)
  Receive Date: 20110628
  Receipt Date: 20110615
  Transmission Date: 20111010
  Serious: Yes (Hospitalization)
  Sender: FDA-Public Use
  Company Number: PHHY2011JP53239

PATIENT
  Age: 53 Year
  Sex: Male
  Weight: 78 kg

DRUGS (6)
  1. WARFARIN SODIUM [Concomitant]
     Indication: ATRIAL FIBRILLATION
  2. SIMULECT [Suspect]
     Indication: RENAL TRANSPLANT
     Dosage: 20 MG,
     Dates: start: 20090301, end: 20090301
  3. TACROLIMUS [Concomitant]
     Indication: RENAL TRANSPLANT
     Dosage: 0.1 MG/KG,
     Dates: start: 20090101
  4. CELLCEPT [Concomitant]
     Indication: RENAL TRANSPLANT
     Dosage: G, UNK
     Dates: start: 20090101
  5. METHYLPREDNISOLONE [Concomitant]
     Indication: RENAL TRANSPLANT
     Dosage: 20 MG,
     Dates: start: 20090101
  6. SIMULECT [Suspect]
     Dosage: 20 MG,
     Dates: start: 20090101, end: 20090101

REACTIONS (1)
  - KIDNEY RUPTURE [None]
